FAERS Safety Report 8634535 (Version 2)
Quarter: 2012Q4

REPORT INFORMATION
  Report Type: 
  Country: DE (occurrence: FR)
  Receive Date: 20120626
  Receipt Date: 20121107
  Transmission Date: 20130627
  Serious: Yes (Death, Life-Threatening)
  Sender: FDA-Public Use
  Company Number: FR-BRISTOL-MYERS SQUIBB COMPANY-16705733

PATIENT
  Age: 77 Year
  Sex: Male

DRUGS (8)
  1. GLUCOPHAGE TABS 1000 MG [Suspect]
     Indication: TYPE 2 DIABETES MELLITUS
     Route: 048
  2. COAPROVEL [Suspect]
     Indication: HYPERTENSION
     Dosage: 1DF=300mg/12.5mg
     Route: 048
  3. XELEVIA [Suspect]
     Indication: TYPE 2 DIABETES MELLITUS
     Route: 048
  4. TAHOR [Suspect]
     Indication: DYSLIPIDAEMIA
     Dosage: Tab
     Route: 048
  5. LEXOMIL [Suspect]
     Indication: ANXIETY
  6. IXPRIM [Suspect]
     Indication: PAIN
     Route: 048
     Dates: start: 201111
  7. AMAREL [Suspect]
     Indication: TYPE 2 DIABETES MELLITUS
     Dosage: Tab
     Route: 048
  8. OMEPRAZOLE [Suspect]
     Indication: GASTROOESOPHAGEAL REFLUX DISEASE
     Route: 048

REACTIONS (1)
  - Pancreatic carcinoma [Fatal]
